FAERS Safety Report 8954052 (Version 3)
Quarter: 2013Q2

REPORT INFORMATION
  Report Type: Spontaneous
  Country: US (occurrence: US)
  Receive Date: 20121207
  Receipt Date: 20130415
  Transmission Date: 20140414
  Serious: Yes (Hospitalization, Disabling)
  Sender: FDA-Public Use
  Company Number: US-BAYER-2012-126118

PATIENT
  Age: 42 Year
  Sex: Female
  Weight: 73 kg

DRUGS (14)
  1. YAZ [Suspect]
  2. YASMIN [Suspect]
  3. AMBIEN [Concomitant]
     Indication: INSOMNIA
  4. ZOFRAN [Concomitant]
     Indication: NAUSEA
  5. OXYCODONE [Concomitant]
     Indication: HEADACHE
  6. SYNTHROID [Concomitant]
     Indication: HYPOTHYROIDISM
  7. CEFTRIAXONE [Concomitant]
     Indication: URINARY TRACT INFECTION
  8. TYLENOL [Concomitant]
  9. ALBUTEROL [Concomitant]
  10. BACTRIM [Concomitant]
     Indication: URINARY TRACT INFECTION
  11. CHLORASEPTIC [Concomitant]
  12. GABAPENTIN [Concomitant]
  13. LANSOPRAZOLE [Concomitant]
  14. NYSTATIN [Concomitant]

REACTIONS (6)
  - Cerebrovascular accident [Recovering/Resolving]
  - Cerebrovascular accident [Recovering/Resolving]
  - Pelvic venous thrombosis [Recovered/Resolved]
  - Injury [Recovering/Resolving]
  - Pain [Recovering/Resolving]
  - Pain [None]
